FAERS Safety Report 20362726 (Version 1)
Quarter: 2022Q1

REPORT INFORMATION
  Report Type: Report from Study
  Country: US (occurrence: US)
  Receive Date: 20220121
  Receipt Date: 20220121
  Transmission Date: 20220424
  Serious: Yes (Hospitalization)
  Sender: FDA-Public Use
  Company Number: US-GLAXOSMITHKLINE-US2022GSK007702

PATIENT
  Age: 77 Year
  Sex: Male
  Weight: 82.3 kg

DRUGS (3)
  1. DOSTARLIMAB [Suspect]
     Active Substance: DOSTARLIMAB
     Indication: Hepatocellular carcinoma
     Dosage: 500 MG, ONCE EVERY 3 WEEKS
     Route: 042
     Dates: start: 20210823, end: 20210823
  2. DOSTARLIMAB [Suspect]
     Active Substance: DOSTARLIMAB
     Dosage: 500 MG, ONCE EVERY 3 WEEKS
     Route: 042
     Dates: start: 20211230, end: 20211230
  3. LACTULOSE [Concomitant]
     Active Substance: LACTULOSE
     Indication: Hepatic encephalopathy
     Dosage: 20 G, BID
     Route: 048
     Dates: start: 20210604

REACTIONS (2)
  - Encephalopathy [Recovering/Resolving]
  - Bacteraemia [Recovering/Resolving]

NARRATIVE: CASE EVENT DATE: 20220110
